FAERS Safety Report 4855474-9 (Version None)
Quarter: 2005Q4

REPORT INFORMATION
  Report Type: 
  Country: None (occurrence: None)
  Receive Date: 20051216
  Receipt Date: 20051208
  Transmission Date: 20060501
  Serious: Yes (Hospitalization)
  Sender: FDA-Public Use
  Company Number: DE-BOEHRINGER INGELHEIM PHARMACEUTICALS, INC.-2005-DE-05395DE

PATIENT
  Sex: Male
  Weight: 90 kg

DRUGS (2)
  1. MICARDIS HCT [Suspect]
     Route: 048
  2. IBUPROFEN [Suspect]
     Route: 048

REACTIONS (4)
  - DRUG ABUSER [None]
  - NAUSEA [None]
  - SUICIDE ATTEMPT [None]
  - VOMITING [None]
